FAERS Safety Report 12331574 (Version 2)
Quarter: 2016Q2

REPORT INFORMATION
  Report Type: Spontaneous
  Country: US (occurrence: US)
  Receive Date: 20160504
  Receipt Date: 20160602
  Transmission Date: 20160815
  Serious: Yes (Other)
  Sender: FDA-Public Use
  Company Number: US-GLAXOSMITHKLINE-US2016061505

PATIENT
  Sex: Male

DRUGS (4)
  1. VENTOLIN [Concomitant]
     Active Substance: ALBUTEROL SULFATE
  2. SYMBICORT [Concomitant]
     Active Substance: BUDESONIDE\FORMOTEROL FUMARATE DIHYDRATE
  3. INCRUSE ELLIPTA [Suspect]
     Active Substance: UMECLIDINIUM BROMIDE
     Indication: CHRONIC OBSTRUCTIVE PULMONARY DISEASE
     Dosage: 1 PUFF(S), QD
     Route: 055
     Dates: start: 20160312, end: 20160429
  4. COMBIVENT RESPIMAT [Interacting]
     Active Substance: ALBUTEROL SULFATE\IPRATROPIUM BROMIDE
     Indication: PRODUCT USED FOR UNKNOWN INDICATION

REACTIONS (8)
  - Urinary incontinence [Recovering/Resolving]
  - Change of bowel habit [Unknown]
  - Atrial fibrillation [Recovering/Resolving]
  - Functional gastrointestinal disorder [Recovering/Resolving]
  - Prostatomegaly [Recovering/Resolving]
  - Gastrointestinal pain [Recovering/Resolving]
  - Emotional distress [Unknown]
  - Labelled drug-drug interaction medication error [Unknown]
